FAERS Safety Report 8895583 (Version 1)
Quarter: 2012Q4

REPORT INFORMATION
  Report Type: 
  Country: US (occurrence: US)
  Receive Date: 20121107
  Receipt Date: 20121107
  Transmission Date: 20130627
  Serious: Yes (Other)
  Sender: FDA-Public Use
  Company Number: US-TEVA-368529USA

PATIENT
  Sex: Female
  Weight: 95.34 kg

DRUGS (6)
  1. COPAXONE [Suspect]
     Indication: MULTIPLE SCLEROSIS
     Dates: start: 201206, end: 201207
  2. COPAXONE [Suspect]
     Dates: start: 201207
  3. AMPYRA [Suspect]
     Indication: GAIT DISTURBANCE
     Dosage: twice a day
     Route: 048
     Dates: start: 201206, end: 201207
  4. AMPYRA [Suspect]
     Dates: start: 201207
  5. NAMENDA [Suspect]
     Indication: MULTIPLE SCLEROSIS
     Route: 048
     Dates: start: 201206, end: 201207
  6. NAMENDA [Suspect]
     Dates: start: 201207

REACTIONS (2)
  - Hypersensitivity [Recovered/Resolved]
  - Rash [Recovered/Resolved]
